FAERS Safety Report 7991606-1 (Version None)
Quarter: 2011Q4

REPORT INFORMATION
  Report Type: 
  Country: None (occurrence: None)
  Receive Date: 20111219
  Receipt Date: 20111024
  Transmission Date: 20120403
  Serious: No
  Sender: FDA-Public Use
  Company Number: US-ALLERGAN-1114032US

PATIENT
  Age: 71 Year
  Sex: Male

DRUGS (1)
  1. LUMIGAN [Suspect]
     Indication: PRODUCT USED FOR UNKNOWN INDICATION
     Dosage: 2 GTT, QHS
     Route: 047
     Dates: start: 20110611

REACTIONS (1)
  - FOREIGN BODY SENSATION IN EYES [None]
